FAERS Safety Report 6065125-6 (Version None)
Quarter: 2009Q1

REPORT INFORMATION
  Report Type: 
  Country: None (occurrence: None)
  Receive Date: 20090204
  Receipt Date: 20090128
  Transmission Date: 20090719
  Serious: Yes (Hospitalization)
  Sender: FDA-Public Use
  Company Number: JP-AVENTIS-200910229JP

PATIENT
  Age: 78 Year
  Sex: Male

DRUGS (2)
  1. GLIBENCLAMIDE [Suspect]
     Route: 048
  2. LISINOPRIL [Concomitant]
     Route: 048

REACTIONS (1)
  - LINEAR IGA DISEASE [None]
